FAERS Safety Report 5582165-1 (Version None)
Quarter: 2008Q1

REPORT INFORMATION
  Report Type: 
  Country: None (occurrence: None)
  Receive Date: 20080104
  Receipt Date: 20071227
  Transmission Date: 20080703
  Serious: Yes (Hospitalization, Other)
  Sender: FDA-Public Use
  Company Number: US-ABBOTT-08P-163-0431762-00

PATIENT
  Sex: Female
  Weight: 57.204 kg

DRUGS (19)
  1. HUMIRA [Suspect]
     Indication: ANKYLOSING SPONDYLITIS
     Route: 058
     Dates: start: 20030601, end: 20031101
  2. HUMIRA [Suspect]
     Indication: CROHN'S DISEASE
     Route: 058
     Dates: start: 20050501
  3. QUETIAPINE [Concomitant]
     Indication: BIPOLAR DISORDER
  4. OXCARBAZEPINE [Concomitant]
     Indication: BIPOLAR DISORDER
  5. LORAZEPAM [Concomitant]
     Indication: ANXIETY
  6. AZATHIOPRINE [Concomitant]
     Indication: CYSTITIS INTERSTITIAL
  7. LEVOTHYROXINE SODIUM [Concomitant]
     Indication: HYPOTHYROIDISM
  8. PRAMIPEXOLE DIHYDROCHLORIDE [Concomitant]
     Indication: DRUG USE FOR UNKNOWN INDICATION
  9. METOCLOPRAMIDE [Concomitant]
     Indication: GASTROOESOPHAGEAL REFLUX DISEASE
  10. PROMETHAZINE [Concomitant]
     Indication: DRUG USE FOR UNKNOWN INDICATION
  11. TIOTROPIUM BROMIDE [Concomitant]
     Indication: DRUG USE FOR UNKNOWN INDICATION
  12. SALBUTAMOL SULFATE [Concomitant]
     Indication: DRUG USE FOR UNKNOWN INDICATION
     Route: 055
  13. OMEPRAZOLE [Concomitant]
     Indication: GASTROOESOPHAGEAL REFLUX DISEASE
  14. NADOLOL [Concomitant]
     Indication: CARDIAC DISORDER
  15. EXTENDED-RELEASE MORPHINE [Concomitant]
     Indication: PAIN
  16. TYLOX [Concomitant]
     Indication: PAIN
  17. PREGABALIN [Concomitant]
     Indication: DRUG USE FOR UNKNOWN INDICATION
  18. DICYCLOMINE HCL [Concomitant]
     Indication: ABDOMINAL PAIN UPPER
  19. PREDNISONE [Concomitant]
     Indication: DRUG USE FOR UNKNOWN INDICATION

REACTIONS (3)
  - CYSTITIS INTERSTITIAL [None]
  - PNEUMONIA STAPHYLOCOCCAL [None]
  - PULMONARY NECROSIS [None]
